FAERS Safety Report 10400973 (Version 1)
Quarter: 2014Q3

REPORT INFORMATION
  Report Type: Report from Study
  Country: BR (occurrence: BR)
  Receive Date: 20140821
  Receipt Date: 20140821
  Transmission Date: 20150326
  Serious: Yes (Other)
  Sender: FDA-Public Use
  Company Number: PHHY2014BR104406

PATIENT
  Sex: Male
  Weight: 25 kg

DRUGS (3)
  1. RITALIN LA [Suspect]
     Active Substance: METHYLPHENIDATE HYDROCHLORIDE
     Indication: PSYCHOMOTOR HYPERACTIVITY
     Dosage: 1 DF, DAILY
  2. DESALEX [Concomitant]
     Active Substance: DESLORATADINE
     Indication: BRONCHITIS
  3. DESALEX [Concomitant]
     Active Substance: DESLORATADINE
     Indication: ANTIALLERGIC THERAPY
     Dosage: 7 ML, UNK

REACTIONS (3)
  - Bronchitis [Recovering/Resolving]
  - Concomitant disease aggravated [Recovering/Resolving]
  - Drug administered to patient of inappropriate age [Unknown]
